FAERS Safety Report 6327913-8 (Version None)
Quarter: 2009Q3

REPORT INFORMATION
  Report Type: 
  Country: None (occurrence: None)
  Receive Date: 20090825
  Receipt Date: 20080908
  Transmission Date: 20100115
  Serious: Yes (Other)
  Sender: FDA-Public Use
  Company Number: US-ABBOTT-08P-163-0446570-00

PATIENT
  Sex: Female
  Weight: 90.8 kg

DRUGS (7)
  1. SYNTHROID [Suspect]
     Indication: DRUG USE FOR UNKNOWN INDICATION
  2. INTERFERON BETA-1A [Suspect]
     Indication: MULTIPLE SCLEROSIS
     Route: 058
     Dates: start: 20070313
  3. GABAPENTIN [Suspect]
     Indication: PARAESTHESIA
  4. GABAPENTIN [Suspect]
     Indication: HYPOAESTHESIA
  5. NAPROXEN [Suspect]
     Indication: DRUG USE FOR UNKNOWN INDICATION
  6. DULOXETINE HYDROCHLORIDE [Suspect]
     Indication: PARAESTHESIA
  7. DULOXETINE HYDROCHLORIDE [Suspect]
     Indication: HYPOAESTHESIA

REACTIONS (2)
  - BREAST CANCER STAGE I [None]
  - BREAST MASS [None]
